FAERS Safety Report 10076420 (Version 2)
Quarter: 2014Q2

REPORT INFORMATION
  Report Type: Spontaneous
  Country: US (occurrence: US)
  Receive Date: 20140414
  Receipt Date: 20140508
  Transmission Date: 20141212
  Serious: No
  Sender: FDA-Public Use
  Company Number: US-TEVA-475399USA

PATIENT
  Age: 25 Year
  Sex: Female
  Weight: 57.2 kg

DRUGS (3)
  1. PARAGARD 380A [Suspect]
     Indication: CONTRACEPTION
     Route: 015
     Dates: start: 20140123, end: 20140410
  2. PRENATAL VITAMINS [Concomitant]
     Indication: POSTPARTUM STATE
  3. ADVAIR DISKUS [Concomitant]
     Indication: ASTHMA

REACTIONS (3)
  - Metrorrhagia [Recovered/Resolved]
  - Vaginal haemorrhage [Unknown]
  - Device expulsion [Recovered/Resolved]
